FAERS Safety Report 6370241-5 (Version None)
Quarter: 2009Q3

REPORT INFORMATION
  Report Type: 
  Country: None (occurrence: None)
  Receive Date: 20090923
  Receipt Date: 20090921
  Transmission Date: 20100115
  Serious: Yes (Death, Life-Threatening, Hospitalization, Other)
  Sender: FDA-Public Use
  Company Number: US-ROXANE LABORATORIES, INC.-2009-RO-00971RO

PATIENT
  Sex: Male

DRUGS (22)
  1. METHADONE HCL [Suspect]
     Indication: DRUG ABUSER
     Dosage: 40 MG
     Route: 065
  2. MORPHINE [Suspect]
     Indication: DRUG USE FOR UNKNOWN INDICATION
     Route: 065
     Dates: start: 19960509
  3. COCAINE [Suspect]
     Indication: DRUG USE FOR UNKNOWN INDICATION
     Route: 065
  4. CEFTRIAXONE SODIUM [Suspect]
     Indication: OPPORTUNISTIC INFECTION PROPHYLAXIS
     Route: 065
     Dates: start: 19960508
  5. INVIRASE [Suspect]
     Indication: HIV INFECTION
     Dosage: 1800 MG
     Route: 048
     Dates: start: 19960501
  6. VERSED [Suspect]
     Indication: AGITATION
     Route: 065
     Dates: start: 19960508
  7. TRIMETHOPRIM [Suspect]
     Indication: ANTIFUNGAL PROPHYLAXIS
     Dosage: 150 MG
     Route: 065
  8. AMPICILLIN [Suspect]
     Indication: OPPORTUNISTIC INFECTION PROPHYLAXIS
     Route: 065
     Dates: start: 19960508
  9. AZT [Suspect]
     Indication: ANTIRETROVIRAL THERAPY
     Dosage: 600 MG
     Route: 065
  10. 3TC [Suspect]
     Indication: ANTIRETROVIRAL THERAPY
     Dosage: 300 MG
     Route: 065
  11. SULPHADIAZINE [Suspect]
     Indication: DRUG USE FOR UNKNOWN INDICATION
     Dosage: 75 MG
     Route: 065
  12. DILANTIN [Suspect]
     Indication: DRUG USE FOR UNKNOWN INDICATION
     Dosage: 400 MG
     Route: 065
  13. HYDROXYZINE [Suspect]
     Indication: DRUG USE FOR UNKNOWN INDICATION
     Route: 065
  14. ETHAMBUTOL [Suspect]
     Indication: OPPORTUNISTIC INFECTION PROPHYLAXIS
     Dosage: 300 MG
     Route: 065
  15. FOLIC ACID [Suspect]
     Indication: DRUG USE FOR UNKNOWN INDICATION
     Dosage: 5 MG
     Route: 065
  16. PYRIMETHAMINE TAB [Suspect]
     Indication: DRUG USE FOR UNKNOWN INDICATION
     Dosage: 75 MG
     Route: 065
  17. ATIVAN [Suspect]
     Indication: AGITATION
     Route: 065
     Dates: start: 19960508
  18. HALDOL [Suspect]
     Indication: AGITATION
     Route: 065
     Dates: start: 19960508
  19. PEPCID [Suspect]
     Indication: DRUG USE FOR UNKNOWN INDICATION
     Route: 065
     Dates: start: 19960508
  20. CLINDAMYCIN [Suspect]
     Indication: TOXOPLASMOSIS
     Route: 065
     Dates: start: 19960508
  21. ACYCLOVIR [Suspect]
     Indication: ANTIVIRAL PROPHYLAXIS
     Route: 065
     Dates: start: 19960508
  22. MANNITOL [Suspect]
     Indication: DRUG USE FOR UNKNOWN INDICATION
     Route: 065
     Dates: start: 19960508

REACTIONS (19)
  - AGITATION [None]
  - AREFLEXIA [None]
  - ATAXIA [None]
  - BLOOD CREATINE PHOSPHOKINASE INCREASED [None]
  - BLOOD MAGNESIUM DECREASED [None]
  - BLOOD PHOSPHORUS DECREASED [None]
  - BLOOD POTASSIUM DECREASED [None]
  - CENTRAL NERVOUS SYSTEM LESION [None]
  - DEATH [None]
  - DRUG SCREEN POSITIVE [None]
  - DYSKINESIA [None]
  - HEADACHE [None]
  - HYPOTENSION [None]
  - MENTAL STATUS CHANGES [None]
  - MUSCULAR WEAKNESS [None]
  - PUPILS UNEQUAL [None]
  - TORSADE DE POINTES [None]
  - VENTRICULAR ARRHYTHMIA [None]
  - VENTRICULAR EXTRASYSTOLES [None]
